FAERS Safety Report 6439211-2 (Version None)
Quarter: 2009Q4

REPORT INFORMATION
  Report Type: 
  Country: None (occurrence: None)
  Receive Date: 20091113
  Receipt Date: 20091103
  Transmission Date: 20100525
  Serious: Yes (Hospitalization, Other)
  Sender: FDA-Public Use
  Company Number: FR-ELI_LILLY_AND_COMPANY-FR200911000453

PATIENT
  Sex: Male

DRUGS (18)
  1. ZYPREXA [Suspect]
     Route: 048
  2. TRUVADA                            /01398801/ [Concomitant]
     Indication: HIV TEST POSITIVE
     Route: 048
     Dates: start: 20090604
  3. ISENTRESS [Concomitant]
     Indication: HIV TEST POSITIVE
     Route: 048
     Dates: start: 20090604
  4. FLAGYL [Concomitant]
     Route: 048
     Dates: start: 20090529, end: 20090608
  5. CLAFORAN [Concomitant]
     Route: 048
     Dates: start: 20090529, end: 20090608
  6. NEXIUM [Concomitant]
     Route: 048
  7. ISOPTIN [Concomitant]
     Route: 048
  8. TERCIAN [Concomitant]
     Dates: end: 20090616
  9. LYRICA [Concomitant]
     Route: 048
     Dates: end: 20090616
  10. RIVOTRIL [Concomitant]
     Route: 048
  11. NICOTINE [Concomitant]
     Dosage: 2 MG, DAILY (1/D)
     Route: 062
  12. MAG 2 [Concomitant]
     Route: 048
  13. LEDERFOLIN [Concomitant]
     Route: 048
  14. IMOVANE [Concomitant]
     Route: 048
  15. SERETIDE [Concomitant]
     Route: 055
  16. VITAMIN B1 AND B6 [Concomitant]
     Route: 048
  17. DOLIPRANE [Concomitant]
     Dosage: 1 G, UNK
     Route: 048
  18. COMBIVIR [Concomitant]

REACTIONS (8)
  - ANAEMIA [None]
  - ASCITES [None]
  - CANDIDIASIS [None]
  - CRYPTOSPORIDIOSIS INFECTION [None]
  - DEHYDRATION [None]
  - HYPOKALAEMIA [None]
  - RENAL FAILURE [None]
  - THROMBOCYTOPENIA [None]
